FAERS Safety Report 11072255 (Version 1)
Quarter: 2015Q2

REPORT INFORMATION
  Report Type: Spontaneous
  Country: None (occurrence: None)
  Receive Date: 20150427
  Receipt Date: 20150427
  Transmission Date: 20150821
  Serious: Yes (Disabling, Other)
  Sender: FDA-Public Use
  Company Number: None

PATIENT
  Age: 52 Year
  Sex: Female
  Weight: 89.36 kg

DRUGS (9)
  1. SPIRONOLACTONE. [Concomitant]
     Active Substance: SPIRONOLACTONE
  2. FEXOFENADINE [Concomitant]
     Active Substance: FEXOFENADINE\FEXOFENADINE HYDROCHLORIDE
  3. FLAXSEED [Concomitant]
     Active Substance: FLAX SEED
  4. MICONAZOLE NITRATE COMBO PACK 200 MG CVS [Suspect]
     Active Substance: MICONAZOLE NITRATE
     Indication: VULVOVAGINAL MYCOTIC INFECTION
     Dosage: 1 VAGINAL CREAM SYRINGE
     Route: 067
     Dates: start: 20150420, end: 20150422
  5. NON-IODINE WOMEN^S FORMULA MULTIVITAMIN [Concomitant]
  6. NEXIUM [Concomitant]
     Active Substance: ESOMEPRAZOLE MAGNESIUM
  7. BYSTOLIC [Concomitant]
     Active Substance: NEBIVOLOL HYDROCHLORIDE
  8. MAGNESIUM [Concomitant]
     Active Substance: MAGNESIUM
  9. NASACORT AQ [Concomitant]
     Active Substance: TRIAMCINOLONE ACETONIDE

REACTIONS (5)
  - Tongue pruritus [None]
  - Cheilitis [None]
  - Glossitis [None]
  - Tongue discolouration [None]
  - Lip pruritus [None]

NARRATIVE: CASE EVENT DATE: 20150421
